FAERS Safety Report 20498797 (Version 1)
Quarter: 2022Q1

REPORT INFORMATION
  Report Type: Report from Study
  Country: CA (occurrence: CA)
  Receive Date: 20220222
  Receipt Date: 20220222
  Transmission Date: 20220423
  Serious: Yes (Death, Hospitalization)
  Sender: FDA-Public Use
  Company Number: CA-ABBVIE-22K-028-4287028-00

PATIENT
  Age: 77 Year
  Sex: Male

DRUGS (1)
  1. HUMIRA [Suspect]
     Active Substance: ADALIMUMAB
     Indication: Crohn^s disease
     Route: 058
     Dates: start: 20170519

REACTIONS (2)
  - Death [Fatal]
  - General physical health deterioration [Unknown]

NARRATIVE: CASE EVENT DATE: 20211218
